FAERS Safety Report 7374517-4 (Version None)
Quarter: 2011Q1

REPORT INFORMATION
  Report Type: 
  Country: None (occurrence: None)
  Receive Date: 20110325
  Receipt Date: 20100205
  Transmission Date: 20110831
  Serious: No
  Sender: FDA-Public Use
  Company Number: US-MYLANLABS-2010S1001943

PATIENT
  Age: 49 Year
  Sex: Female
  Weight: 58.97 kg

DRUGS (8)
  1. ADDERALL 10 [Concomitant]
     Route: 048
  2. VICODIN [Concomitant]
     Indication: PAIN
     Route: 048
  3. LEVOTHYROXINE SODIUM [Concomitant]
     Route: 048
  4. LORAZEPAM [Concomitant]
     Route: 048
  5. FENTANYL-100 [Suspect]
     Indication: FIBROMYALGIA
     Dosage: Q72H
     Route: 062
     Dates: start: 20100125
  6. CYMBALTA [Concomitant]
     Route: 048
  7. FENTANYL-100 [Suspect]
     Indication: PAIN
     Dosage: Q72H
     Route: 062
     Dates: start: 20100125
  8. LEXAPRO [Concomitant]
     Route: 048

REACTIONS (6)
  - HYPERHIDROSIS [None]
  - DRUG INEFFECTIVE [None]
  - DRUG WITHDRAWAL SYNDROME [None]
  - FEELING HOT [None]
  - PAIN [None]
  - ANXIETY [None]
